FAERS Safety Report 8184200-3 (Version None)
Quarter: 2012Q1

REPORT INFORMATION
  Report Type: 
  Country: None (occurrence: None)
  Receive Date: 20120305
  Receipt Date: 20120224
  Transmission Date: 20120608
  Serious: Yes (Other)
  Sender: FDA-Public Use
  Company Number: CA-ROCHE-1043511

PATIENT
  Sex: Female
  Weight: 56.75 kg

DRUGS (13)
  1. CELEBREX [Concomitant]
  2. ACETAMINOPHEN [Concomitant]
     Indication: PREMEDICATION
     Route: 048
     Dates: start: 20110323, end: 20110323
  3. CLONAZEPAM [Concomitant]
  4. METHYLPREDNISOLONE [Concomitant]
     Indication: PREMEDICATION
     Route: 042
     Dates: start: 20110323, end: 20110323
  5. VITAMIN E [Concomitant]
  6. ADVAIR DISKUS 100/50 [Concomitant]
  7. MABTHERA [Suspect]
     Indication: RHEUMATOID ARTHRITIS
     Route: 042
     Dates: start: 20080108
  8. DIPHENHYDRAMINE HCL [Concomitant]
     Indication: PREMEDICATION
     Route: 048
     Dates: start: 20110323, end: 20110323
  9. NEXIUM [Concomitant]
  10. CALCIUM [Concomitant]
  11. VALTREX [Concomitant]
  12. METHOTREXATE [Concomitant]
  13. FOLIC ACID [Concomitant]

REACTIONS (1)
  - DEPRESSION [None]
